FAERS Safety Report 19026266 (Version 2)
Quarter: 2021Q2

REPORT INFORMATION
  Report Type: Spontaneous
  Country: BE (occurrence: BE)
  Receive Date: 20210318
  Receipt Date: 20210409
  Transmission Date: 20210717
  Serious: Yes (Hospitalization, Other)
  Sender: FDA-Public Use
  Company Number: BE-AMGEN-BELSP2021039993

PATIENT
  Sex: Female

DRUGS (1)
  1. PROLIA [Suspect]
     Active Substance: DENOSUMAB
     Indication: OSTEOPOROSIS POSTMENOPAUSAL
     Dosage: 60 MILLIGRAM, Q6MO
     Route: 065
     Dates: start: 2014

REACTIONS (5)
  - Metastases to breast [Unknown]
  - Radiation necrosis [Unknown]
  - Unevaluable event [Unknown]
  - Spinal compression fracture [Unknown]
  - Oedema [Unknown]

NARRATIVE: CASE EVENT DATE: 2015
